FAERS Safety Report 9102179 (Version 2)
Quarter: 2013Q1

REPORT INFORMATION
  Report Type: Spontaneous
  Country: FR (occurrence: FR)
  Receive Date: 20130218
  Receipt Date: 20130306
  Transmission Date: 20140127
  Serious: Yes (Other)
  Sender: FDA-Public Use
  Company Number: FR-ABBOTT-13P-056-1051502-00

PATIENT
  Age: 75 Year
  Sex: Male

DRUGS (3)
  1. ENANTONE [Suspect]
     Indication: PROSTATE CANCER METASTATIC
     Route: 050
  2. DISTILBENE [Suspect]
     Indication: PROSTATE CANCER METASTATIC
     Route: 065
  3. CAPTOPRIL [Concomitant]
     Indication: HYPERTENSION

REACTIONS (3)
  - Angioedema [Recovered/Resolved]
  - Prostatic specific antigen increased [Unknown]
  - Drug ineffective [Unknown]
